FAERS Safety Report 13567820 (Version 2)
Quarter: 2017Q4

REPORT INFORMATION
  Report Type: Spontaneous
  Country: FR (occurrence: FR)
  Receive Date: 20170522
  Receipt Date: 20171120
  Transmission Date: 20180320
  Serious: Yes (Hospitalization)
  Sender: FDA-Public Use
  Company Number: FR-OTSUKA-2017_011008

PATIENT
  Age: 59 Year
  Sex: Male

DRUGS (7)
  1. JINARC [Suspect]
     Active Substance: TOLVAPTAN
     Dosage: 30 MG, QD (IN EVENING)
     Route: 048
     Dates: start: 201705
  2. JINARC [Suspect]
     Active Substance: TOLVAPTAN
     Dosage: 60 MG, QD (IN MORNING)
     Route: 048
     Dates: start: 201705
  3. JINARC [Suspect]
     Active Substance: TOLVAPTAN
     Dosage: 45 MG, QD (IN MORNING)
     Route: 048
     Dates: start: 201701
  4. JINARC [Suspect]
     Active Substance: TOLVAPTAN
     Indication: PRODUCT USED FOR UNKNOWN INDICATION
     Dosage: 60 MG, QD (IN MORNING)
     Route: 048
     Dates: start: 20170403, end: 20170415
  5. JINARC [Suspect]
     Active Substance: TOLVAPTAN
     Dosage: 30 MG, QD (IN EVENING)
     Route: 048
     Dates: start: 20170403, end: 20170415
  6. JINARC [Suspect]
     Active Substance: TOLVAPTAN
     Dosage: 15 MG, QD (IN EVENING)
     Route: 048
     Dates: start: 201701
  7. TAHOR [Concomitant]
     Active Substance: ATORVASTATIN CALCIUM
     Indication: DYSLIPIDAEMIA
     Dosage: 10 MG, QD
     Route: 048
     Dates: start: 2010

REACTIONS (2)
  - Constipation [Recovered/Resolved]
  - Faecaloma [Not Recovered/Not Resolved]

NARRATIVE: CASE EVENT DATE: 201704
